FAERS Safety Report 23479115 (Version 3)
Quarter: 2024Q3

REPORT INFORMATION
  Report Type: Spontaneous
  Country: CA (occurrence: CA)
  Receive Date: 20240205
  Receipt Date: 20240906
  Transmission Date: 20241016
  Serious: Yes (Hospitalization, Other)
  Sender: CELLTRION
  Company Number: CA-CELLTRION INC.-2020CA023822

PATIENT

DRUGS (37)
  1. INFLECTRA [Suspect]
     Active Substance: INFLIXIMAB-DYYB
     Indication: Ankylosing spondylitis
     Dosage: 325 MG, 0, 2, 6 WEEKS, THEN EVERY 8 WEEKS
     Route: 042
     Dates: start: 20200317
  2. INFLECTRA [Suspect]
     Active Substance: INFLIXIMAB-DYYB
     Dosage: 325 MG, 0, 2, 6 WEEKS, THEN EVERY 8 WEEKS
     Route: 042
     Dates: start: 20200429
  3. INFLECTRA [Suspect]
     Active Substance: INFLIXIMAB-DYYB
     Dosage: 325 MG, 0, 2, 6 WEEKS, THEN EVERY 8 WEEKS
     Route: 042
     Dates: start: 20200625
  4. INFLECTRA [Suspect]
     Active Substance: INFLIXIMAB-DYYB
     Dosage: 325 MG, 0, 2, 6 WEEKS, THEN EVERY 8 WEEKS
     Route: 042
     Dates: start: 20200819, end: 20200819
  5. INFLECTRA [Suspect]
     Active Substance: INFLIXIMAB-DYYB
     Dosage: 325 MG, 0, 2, 6 WEEKS, THEN EVERY 8 WEEKS
     Route: 042
     Dates: start: 20201209
  6. INFLECTRA [Suspect]
     Active Substance: INFLIXIMAB-DYYB
     Dosage: 400 MG (5 MG/KG), EVERY 6 WEEKS
     Route: 042
     Dates: start: 20210120
  7. INFLECTRA [Suspect]
     Active Substance: INFLIXIMAB-DYYB
     Dosage: 400 MG (5 MG/KG), EVERY 6 WEEKS
     Route: 042
     Dates: start: 20210303
  8. INFLECTRA [Suspect]
     Active Substance: INFLIXIMAB-DYYB
     Dosage: 325 MG (5 MG/KG), EVERY 4 WEEK
     Route: 042
     Dates: start: 20210414
  9. INFLECTRA [Suspect]
     Active Substance: INFLIXIMAB-DYYB
     Dosage: 400 MG EVERY 4 WEEK (5MG/KG)
     Route: 042
     Dates: start: 20210414
  10. INFLECTRA [Suspect]
     Active Substance: INFLIXIMAB-DYYB
     Dosage: 5 MG/KG, EVERY 4 WEEKS
     Route: 042
     Dates: start: 20210515
  11. INFLECTRA [Suspect]
     Active Substance: INFLIXIMAB-DYYB
     Dosage: 5 MG/KG, EVERY 4 WEEKS
     Route: 042
     Dates: start: 20210609
  12. INFLECTRA [Suspect]
     Active Substance: INFLIXIMAB-DYYB
     Dosage: 5 MG/KG, EVERY 4 WEEKS
     Route: 042
     Dates: start: 20210721
  13. INFLECTRA [Suspect]
     Active Substance: INFLIXIMAB-DYYB
     Dosage: 5 MG/KG, EVERY 4 WEEKS
     Route: 042
     Dates: start: 20211206
  14. INFLECTRA [Suspect]
     Active Substance: INFLIXIMAB-DYYB
     Dosage: 400 MG (5 MG/KG), EVERY 4 WEEKS
     Route: 042
     Dates: start: 20220726
  15. INFLECTRA [Suspect]
     Active Substance: INFLIXIMAB-DYYB
     Dosage: 400 MG (5 MG/KG), EVERY 4 WEEKS
     Route: 042
     Dates: start: 20220823, end: 20220823
  16. INFLECTRA [Suspect]
     Active Substance: INFLIXIMAB-DYYB
     Dosage: 400 MG (5 MG/KG), EVERY 4 WEEKS
     Route: 042
     Dates: start: 20221213
  17. INFLECTRA [Suspect]
     Active Substance: INFLIXIMAB-DYYB
     Dosage: 400 MG (5 MG/KG), EVERY 4 WEEKS
     Route: 042
     Dates: start: 20230123, end: 20230123
  18. INFLECTRA [Suspect]
     Active Substance: INFLIXIMAB-DYYB
     Dosage: 400 MG (5 MG/KG), EVERY 4 WEEKS
     Route: 042
     Dates: start: 20230321
  19. INFLECTRA [Suspect]
     Active Substance: INFLIXIMAB-DYYB
     Dosage: 400 MG Q 4 WEEKS
     Route: 042
     Dates: start: 20230419
  20. INFLECTRA [Suspect]
     Active Substance: INFLIXIMAB-DYYB
     Dosage: 400 MG Q 4 WEEKS
     Route: 042
     Dates: start: 20231005
  21. INFLECTRA [Suspect]
     Active Substance: INFLIXIMAB-DYYB
     Dosage: 400 MG AFTER 4 WEEKS
     Route: 042
     Dates: start: 20231102
  22. INFLECTRA [Suspect]
     Active Substance: INFLIXIMAB-DYYB
     Dosage: 400 MG (5 MG/KG), EVERY 4 WEEKS
     Route: 042
     Dates: start: 20231130
  23. INFLECTRA [Suspect]
     Active Substance: INFLIXIMAB-DYYB
     Dosage: 5 MG/KG, EVERY 4 WEEKS (400 MG)
     Route: 042
     Dates: start: 20231228
  24. INFLECTRA [Suspect]
     Active Substance: INFLIXIMAB-DYYB
     Dosage: 400 MG, 4 WEEKS
     Route: 042
     Dates: start: 20240125
  25. INFLECTRA [Suspect]
     Active Substance: INFLIXIMAB-DYYB
     Dosage: 400 MG (5 MG/KG), EVERY 4 WEEKS
     Route: 042
     Dates: start: 20240724
  26. INFLECTRA [Suspect]
     Active Substance: INFLIXIMAB-DYYB
     Dosage: 400 MG, AFTER 2 WEEKS AND 1 DAYS (5 MG/KG, EVERY 4 WEEKS)
     Route: 042
     Dates: start: 20240808
  27. INFLECTRA [Suspect]
     Active Substance: INFLIXIMAB-DYYB
     Dosage: 400 MG, AFTER 2 WEEKS AND 1 DAYS (5 MG/KG, EVERY 4 WEEKS)
     Route: 042
     Dates: start: 20240808
  28. AMITRIPTYLINE [Concomitant]
     Active Substance: AMITRIPTYLINE
     Indication: Migraine
     Dosage: 10 MG, 1X/DAY
     Route: 065
  29. DIPHENHYDRAMINE [Concomitant]
     Active Substance: DIPHENHYDRAMINE
     Indication: Premedication
     Dosage: 50 MG
     Route: 048
     Dates: start: 20200819, end: 20200819
  30. DIPHENHYDRAMINE [Concomitant]
     Active Substance: DIPHENHYDRAMINE
     Dosage: 50 MG
     Dates: start: 20210515, end: 20210515
  31. DIPHENHYDRAMINE [Concomitant]
     Active Substance: DIPHENHYDRAMINE
     Dosage: 50 MG
     Route: 048
     Dates: start: 20220823, end: 20220823
  32. LOSEC [Concomitant]
     Active Substance: OMEPRAZOLE
     Dosage: 1 DF, 1X/DAY
     Route: 048
  33. LOSEC [Concomitant]
     Active Substance: OMEPRAZOLE
     Dosage: 1 DF, ONCE A DAY (1 TABLET OD)
     Route: 048
  34. RIFAMPIN [Concomitant]
     Active Substance: RIFAMPIN
     Dosage: 2 TABS (1X/DAY) [2 TABS OD]
     Route: 048
     Dates: start: 20191202
  35. RIFAMPIN [Concomitant]
     Active Substance: RIFAMPIN
     Dosage: 1 DF, 1X/DAY, 2 TABS OD
     Route: 048
     Dates: start: 20191202
  36. MESALAMINE [Concomitant]
     Active Substance: MESALAMINE
     Dosage: 5 DF, 1X/DAY (5 TABLET (1X/DAY))
     Route: 048
  37. MESALAMINE [Concomitant]
     Active Substance: MESALAMINE
     Dosage: 1 DF, ONCE A DAY (ALSO REPORTED AS 5 TABLETS OD)
     Route: 048

REACTIONS (18)
  - Uveitis [Recovered/Resolved]
  - Inflammation [Recovering/Resolving]
  - Pyrexia [Recovering/Resolving]
  - Blood pressure increased [Not Recovered/Not Resolved]
  - Weight increased [Recovered/Resolved]
  - Depression [Not Recovered/Not Resolved]
  - Heart rate decreased [Recovered/Resolved]
  - Pruritus [Unknown]
  - Arthralgia [Not Recovered/Not Resolved]
  - Aphthous ulcer [Recovered/Resolved]
  - Anal fissure [Recovered/Resolved]
  - Abdominal pain [Not Recovered/Not Resolved]
  - Therapeutic product effect incomplete [Unknown]
  - Off label use [Unknown]
  - Off label use [Unknown]
  - Off label use [Unknown]
  - Intentional product use issue [Unknown]
  - Inappropriate schedule of product administration [Unknown]

NARRATIVE: CASE EVENT DATE: 20200625
